FAERS Safety Report 21091876 (Version 3)
Quarter: 2022Q3

REPORT INFORMATION
  Report Type: Spontaneous
  Country: FR (occurrence: FR)
  Receive Date: 20220717
  Receipt Date: 20220809
  Transmission Date: 20221027
  Serious: Yes (Other)
  Sender: FDA-Public Use
  Company Number: FR-NOVARTISPH-NVSC2022FR157731

PATIENT
  Age: 57 Year
  Sex: Female
  Weight: 96.6 kg

DRUGS (8)
  1. TACROLIMUS [Suspect]
     Active Substance: TACROLIMUS
     Indication: Renal transplant
     Dosage: UNK UNK, UNKNOWN FREQ.
     Route: 065
  2. CERTICAN [Concomitant]
     Active Substance: EVEROLIMUS
     Indication: Immunosuppression
     Dosage: 1 MG (1 MG, TOTAL DAILY DOSE)
     Route: 065
     Dates: start: 20190226, end: 20190306
  3. CERTICAN [Concomitant]
     Active Substance: EVEROLIMUS
     Dosage: 1.5 MG (1.5 MG, TOTAL DAILY DOSE)
     Route: 065
     Dates: start: 20190307, end: 20190910
  4. CERTICAN [Concomitant]
     Active Substance: EVEROLIMUS
     Dosage: 2 MG (2 MG, TOTAL DAILY DOSE)
     Route: 065
     Dates: start: 20190911, end: 20191004
  5. CERTICAN [Concomitant]
     Active Substance: EVEROLIMUS
     Dosage: 2.5 MG (2.5 MG, TOTAL DAILY DOSE)
     Route: 065
     Dates: start: 20191005, end: 20210115
  6. CERTICAN [Concomitant]
     Active Substance: EVEROLIMUS
     Dosage: 1.5 MG (1.5 MG, TOTAL DAILY DOSE)
     Route: 065
     Dates: start: 20210116, end: 20210125
  7. CERTICAN [Concomitant]
     Active Substance: EVEROLIMUS
     Dosage: 3.5 MG (3.5 MG, TOTAL DAILY DOSE)
     Route: 065
     Dates: start: 20210126
  8. AUGMENTIN [Concomitant]
     Active Substance: AMOXICILLIN\CLAVULANATE POTASSIUM
     Indication: Antibiotic therapy
     Dosage: UNK UNK, UNKNOWN FREQ.
     Route: 048
     Dates: start: 2021, end: 2021

REACTIONS (1)
  - Pyelonephritis acute [Recovered/Resolved]

NARRATIVE: CASE EVENT DATE: 20210207
